FAERS Safety Report 22948090 (Version 2)
Quarter: 2023Q4

REPORT INFORMATION
  Report Type: Report from Study
  Country: US (occurrence: US)
  Receive Date: 20230915
  Receipt Date: 20231213
  Transmission Date: 20240109
  Serious: Yes (Hospitalization, Other)
  Sender: FDA-Public Use
  Company Number: US-ARGENX-2022-ARGX-US001045

PATIENT

DRUGS (4)
  1. VYVGART [Suspect]
     Active Substance: EFGARTIGIMOD ALFA-FCAB
     Indication: Myasthenia gravis
     Dosage: 10 MG/KG
     Route: 042
  2. VYVGART [Suspect]
     Active Substance: EFGARTIGIMOD ALFA-FCAB
     Dosage: 1200 MG, 1/WEEK FOR 4 WEEKS
     Route: 042
     Dates: start: 20220622
  3. VYVGART [Suspect]
     Active Substance: EFGARTIGIMOD ALFA-FCAB
     Dosage: 10 MG/KG
     Route: 058
     Dates: start: 20230214
  4. MESTINON [Concomitant]
     Active Substance: PYRIDOSTIGMINE BROMIDE
     Indication: Product used for unknown indication
     Dosage: UNK

REACTIONS (17)
  - Ear infection [Unknown]
  - Hysterectomy [Recovering/Resolving]
  - Gastrointestinal pain [Unknown]
  - Diarrhoea [Unknown]
  - Muscle spasms [Recovering/Resolving]
  - Myasthenia gravis [Unknown]
  - Anxiety [Unknown]
  - Device related thrombosis [Not Recovered/Not Resolved]
  - Myasthenia gravis [Recovered/Resolved]
  - Unevaluable event [Recovered/Resolved]
  - Incontinence [Recovered/Resolved]
  - Inappropriate schedule of product administration [Unknown]
  - Thirst [Unknown]
  - Road traffic accident [Unknown]
  - Fall [Unknown]
  - Fatigue [Unknown]
  - Headache [Unknown]

NARRATIVE: CASE EVENT DATE: 20230215
